FAERS Safety Report 13604932 (Version 1)
Quarter: 2017Q2

REPORT INFORMATION
  Report Type: Spontaneous
  Country: GB (occurrence: GB)
  Receive Date: 20170602
  Receipt Date: 20170602
  Transmission Date: 20170830
  Serious: Yes (Other)
  Sender: FDA-Public Use
  Company Number: GB-AUROBINDO-AUR-APL-2017-34692

PATIENT
  Age: 16 Year
  Sex: Female
  Weight: 55 kg

DRUGS (2)
  1. QUETIAPINE. [Concomitant]
     Active Substance: QUETIAPINE
     Indication: BIPOLAR DISORDER
     Dosage: 200 MG, TWO TIMES A DAY
     Route: 048
     Dates: start: 20161122
  2. LAMOTRIGINE. [Suspect]
     Active Substance: LAMOTRIGINE
     Indication: BIPOLAR DISORDER
     Dosage: 100 MG, TWO TIMES A DAY
     Route: 048
     Dates: start: 20170314, end: 20170506

REACTIONS (6)
  - Tachycardia [Recovering/Resolving]
  - Apathy [Recovering/Resolving]
  - Disorientation [Recovering/Resolving]
  - Stupor [Recovering/Resolving]
  - Somnolence [Recovering/Resolving]
  - Confusional state [Recovering/Resolving]

NARRATIVE: CASE EVENT DATE: 20170415
